FAERS Safety Report 6117447-8 (Version None)
Quarter: 2009Q1

REPORT INFORMATION
  Report Type: 
  Country: None (occurrence: None)
  Receive Date: 20090314
  Receipt Date: 20090119
  Transmission Date: 20090719
  Serious: No
  Sender: FDA-Public Use
  Company Number: US-ABBOTT-09P-163-0498825-00

PATIENT
  Sex: Female
  Weight: 51.756 kg

DRUGS (4)
  1. HUMIRA [Suspect]
     Indication: RHEUMATOID ARTHRITIS
     Route: 058
     Dates: start: 20050101
  2. CLONAZEPAM [Concomitant]
     Indication: SOMNAMBULISM
     Route: 048
  3. LEXAPRO [Concomitant]
     Indication: ANXIETY
     Dosage: DAILY AT BEDTIME
     Route: 048
  4. LEXAPRO [Concomitant]
     Indication: DEPRESSION

REACTIONS (2)
  - EAR PAIN [None]
  - HEADACHE [None]
